FAERS Safety Report 11093962 (Version 1)
Quarter: 2015Q2

REPORT INFORMATION
  Report Type: Report from Study
  Country: US (occurrence: US)
  Receive Date: 20150506
  Receipt Date: 20150506
  Transmission Date: 20150821
  Serious: Yes (Death, Hospitalization, Other)
  Sender: FDA-Public Use
  Company Number: US-BAYER-2014-171604

PATIENT
  Age: 77 Year
  Sex: Male

DRUGS (1)
  1. NEXAVAR [Suspect]
     Active Substance: SORAFENIB
     Indication: HEPATOCELLULAR CARCINOMA
     Dosage: 400 MG, BID
     Route: 048
     Dates: start: 20141110, end: 20141120

REACTIONS (9)
  - Aphagia [Fatal]
  - Asthenia [None]
  - Fluid intake reduced [None]
  - Dehydration [Fatal]
  - Abdominal pain [None]
  - Feeling abnormal [None]
  - Anuria [Fatal]
  - Acute kidney injury [Fatal]
  - Hypophagia [None]

NARRATIVE: CASE EVENT DATE: 201411
